FAERS Safety Report 23270902 (Version 1)
Quarter: 2023Q4

REPORT INFORMATION
  Report Type: Spontaneous
  Country: US (occurrence: US)
  Receive Date: 20231207
  Receipt Date: 20231207
  Transmission Date: 20240109
  Serious: No
  Sender: FDA-Public Use
  Company Number: US-PHARMAESSENTIA CORPORATION-US-2023-PEC-001965

PATIENT
  Sex: Female

DRUGS (3)
  1. BESREMI [Suspect]
     Active Substance: ROPEGINTERFERON ALFA-2B-NJFT
     Indication: Polycythaemia vera
     Dosage: UNK
     Route: 058
     Dates: start: 20230127
  2. BESREMI [Suspect]
     Active Substance: ROPEGINTERFERON ALFA-2B-NJFT
     Dosage: 150 MCG, Q2W (2X MONTHLY)
     Route: 058
  3. BESREMI [Suspect]
     Active Substance: ROPEGINTERFERON ALFA-2B-NJFT
     Dosage: UNK
     Route: 065
     Dates: start: 20230922

REACTIONS (5)
  - Loss of personal independence in daily activities [Unknown]
  - Anhedonia [Unknown]
  - Hyperthyroidism [Recovered/Resolved]
  - Persistent depressive disorder [Unknown]
  - Depression [Unknown]
